FAERS Safety Report 5194741-9 (Version None)
Quarter: 2006Q4

REPORT INFORMATION
  Report Type: 
  Country: None (occurrence: None)
  Receive Date: 20061226
  Receipt Date: 20061226
  Transmission Date: 20070319
  Serious: Yes (Other)
  Sender: FDA-Public Use
  Company Number: None

PATIENT
  Age: 45 Year
  Sex: Female
  Weight: 87.9978 kg

DRUGS (1)
  1. METHOTREXATE [Suspect]
     Indication: BREAST CANCER
     Dosage: 1200 Q 3 WEEK IV
     Route: 042
     Dates: start: 20061110, end: 20061222

REACTIONS (2)
  - RASH [None]
  - SWELLING FACE [None]
